FAERS Safety Report 6758097-X (Version None)
Quarter: 2010Q2

REPORT INFORMATION
  Report Type: 
  Country: None (occurrence: None)
  Receive Date: 20100607
  Receipt Date: 20100601
  Transmission Date: 20101027
  Serious: Yes (Death)
  Sender: FDA-Public Use
  Company Number: US-CELGENEUS-163-50794-10060141

PATIENT
  Sex: Male

DRUGS (8)
  1. VIDAZA [Suspect]
     Route: 058
     Dates: start: 20100517, end: 20100521
  2. FLOMAX [Concomitant]
     Route: 065
     Dates: start: 20100512
  3. MIRALAX [Concomitant]
     Indication: CONSTIPATION
     Route: 048
     Dates: start: 20100512
  4. AMBIEN [Concomitant]
     Indication: INSOMNIA
     Route: 065
     Dates: start: 20100414
  5. NORCO [Concomitant]
     Indication: PAIN
     Dosage: 325MG/7.5MG
     Route: 048
     Dates: start: 20100505
  6. MEGACE [Concomitant]
     Indication: APPETITE DISORDER
     Route: 048
     Dates: start: 20100505
  7. FERROUS SULFATE TAB [Concomitant]
     Dosage: 300MG/5ML
     Route: 048
     Dates: start: 20100324
  8. ZOMETA [Concomitant]
     Route: 051
     Dates: start: 20100331

REACTIONS (1)
  - DEATH [None]
